FAERS Safety Report 14038048 (Version 1)
Quarter: 2017Q4

REPORT INFORMATION
  Report Type: Spontaneous
  Country: US (occurrence: None)
  Receive Date: 20171003
  Receipt Date: 20171003
  Transmission Date: 20180321
  Serious: No
  Sender: FDA-Public Use
  Company Number: None

PATIENT
  Age: 48 Year
  Sex: Female

DRUGS (1)
  1. KEVZARA [Suspect]
     Active Substance: SARILUMAB

REACTIONS (4)
  - Urticaria [None]
  - Pruritus [None]
  - Therapy cessation [None]
  - Swelling [None]

NARRATIVE: CASE EVENT DATE: 20170714
